FAERS Safety Report 20905282 (Version 1)
Quarter: 2022Q2

REPORT INFORMATION
  Report Type: Other
  Country: GB (occurrence: GB)
  Receive Date: 20220602
  Receipt Date: 20220602
  Transmission Date: 20220721
  Serious: Yes (Hospitalization, Disabling, Other)
  Sender: FDA-Public Use
  Company Number: None

PATIENT

DRUGS (6)
  1. LINEZOLID [Suspect]
     Active Substance: LINEZOLID
     Indication: Bone tuberculosis
     Dosage: 600 MILLIGRAM, QD
     Route: 048
     Dates: start: 20200426, end: 20210510
  2. NIACINAMIDE\PYRIDOXINE HYDROCHLORIDE\RIBOFLAVIN\THIAMINE HYDROCHLORIDE [Concomitant]
     Active Substance: NIACINAMIDE\PYRIDOXINE HYDROCHLORIDE\RIBOFLAVIN\THIAMINE HYDROCHLORIDE
     Indication: Product used for unknown indication
     Dosage: 1 DOSAGE FORM, TID
     Route: 048
  3. CLOFAZIMINE [Concomitant]
     Active Substance: CLOFAZIMINE
     Indication: Bone tuberculosis
     Dosage: 100 MILLIGRAM, QD
     Route: 048
     Dates: start: 20200426
  4. CYCLOSERINE [Concomitant]
     Active Substance: CYCLOSERINE
     Indication: Bone tuberculosis
     Route: 048
     Dates: start: 20200426
  5. GABAPENTIN [Concomitant]
     Active Substance: GABAPENTIN
     Indication: Product used for unknown indication
     Dosage: 300 MILLIGRAM, TID
     Route: 048
  6. LEVOFLOXACIN [Concomitant]
     Active Substance: LEVOFLOXACIN
     Indication: Bone tuberculosis
     Dosage: 500 MILLIGRAM, BID
     Route: 048
     Dates: start: 20210226

REACTIONS (3)
  - Photophobia [Unknown]
  - Optic neuritis [Unknown]
  - Headache [Unknown]

NARRATIVE: CASE EVENT DATE: 20210419
